FAERS Safety Report 7322637-2 (Version None)
Quarter: 2011Q1

REPORT INFORMATION
  Report Type: 
  Country: None (occurrence: None)
  Receive Date: 20110301
  Receipt Date: 20110223
  Transmission Date: 20110831
  Serious: No
  Sender: FDA-Public Use
  Company Number: US-PFIZER INC-2011040412

PATIENT
  Sex: Male

DRUGS (3)
  1. ADVIL CONGESTION RELIEF [Suspect]
     Indication: NASOPHARYNGITIS
     Dosage: ^TOOK THE RECOMMENDED DOSE^
  2. ADVIL CONGESTION RELIEF [Suspect]
     Indication: SINUS HEADACHE
  3. ADVIL CONGESTION RELIEF [Suspect]
     Indication: NASAL CONGESTION

REACTIONS (1)
  - DRUG EFFECT DECREASED [None]
